FAERS Safety Report 10077491 (Version 2)
Quarter: 2014Q2

REPORT INFORMATION
  Report Type: Spontaneous
  Country: US (occurrence: US)
  Receive Date: 20140414
  Receipt Date: 20140414
  Transmission Date: 20141212
  Serious: No
  Sender: FDA-Public Use
  Company Number: US-BANPHARM-20131618

PATIENT
  Age: 34 Year
  Sex: Female
  Weight: 90.72 kg

DRUGS (4)
  1. ALEVE LIQUID GELS 220 MG [Suspect]
     Indication: HEADACHE
     Route: 048
  2. PHENOBARBITAL [Concomitant]
  3. PHENERGRAN [Concomitant]
  4. PRESCRIPTION MEDICATION FOR MIGRAINE [Concomitant]

REACTIONS (3)
  - Glossodynia [Recovered/Resolved]
  - Wrong technique in drug usage process [Recovered/Resolved]
  - Tongue discolouration [Recovered/Resolved]
